FAERS Safety Report 16938294 (Version 1)
Quarter: 2019Q4

REPORT INFORMATION
  Report Type: Spontaneous
  Country: KR (occurrence: KR)
  Receive Date: 20191019
  Receipt Date: 20191019
  Transmission Date: 20200122
  Serious: Yes (Hospitalization, Other)
  Sender: FDA-Public Use
  Company Number: KR-ACCORD-158430

PATIENT
  Age: 34 Year
  Sex: Male

DRUGS (4)
  1. FLUOXETINE [Suspect]
     Active Substance: FLUOXETINE HYDROCHLORIDE
  2. TOPIRAMATE. [Suspect]
     Active Substance: TOPIRAMATE
  3. PHENTERMINE. [Suspect]
     Active Substance: PHENTERMINE
  4. CAFFEINE/CAFFEINE CITRATE [Suspect]
     Active Substance: CAFFEINE CITRATE

REACTIONS (2)
  - Affective disorder [Recovered/Resolved]
  - Intentional overdose [Unknown]
